FAERS Safety Report 5394491-X (Version None)
Quarter: 2007Q3

REPORT INFORMATION
  Report Type: 
  Country: None (occurrence: None)
  Receive Date: 20070723
  Receipt Date: 20070709
  Transmission Date: 20080115
  Serious: Yes (Death)
  Sender: FDA-Public Use
  Company Number: US-ASTRAZENECA-2006UW09029

PATIENT
  Age: 612 Month
  Sex: Male

DRUGS (8)
  1. SEROQUEL [Suspect]
     Indication: SCHIZOPHRENIA
     Route: 048
     Dates: start: 20030901, end: 20060101
  2. SEROQUEL [Suspect]
     Indication: DEPRESSION
     Route: 048
     Dates: start: 20030901, end: 20060101
  3. RISPERDAL [Suspect]
     Indication: SCHIZOPHRENIA
     Dates: start: 19950101
  4. RISPERDAL [Suspect]
     Indication: DEPRESSION
     Dates: start: 19950101
  5. RISPERDAL [Suspect]
     Dates: start: 19990101, end: 20030901
  6. RISPERDAL [Suspect]
     Dates: start: 19990101, end: 20030901
  7. ZYPREXA [Suspect]
     Indication: SCHIZOPHRENIA
     Dates: start: 20040601, end: 20060101
  8. ZYPREXA [Suspect]
     Indication: DEPRESSION
     Dates: start: 20040601, end: 20060101

REACTIONS (2)
  - DEATH [None]
  - DIABETES MELLITUS [None]
